FAERS Safety Report 5475198-7 (Version None)
Quarter: 2007Q4

REPORT INFORMATION
  Report Type: 
  Country: None (occurrence: None)
  Receive Date: 20071002
  Receipt Date: 20070920
  Transmission Date: 20080405
  Serious: Yes (Other)
  Sender: FDA-Public Use
  Company Number: US-PFIZER INC-2007079066

PATIENT
  Sex: Male
  Weight: 90.9 kg

DRUGS (5)
  1. LYRICA [Suspect]
     Indication: PARAESTHESIA
     Dates: start: 20070101, end: 20070801
  2. LYRICA [Suspect]
     Indication: HYPOAESTHESIA
  3. AMARYL [Concomitant]
  4. ATACAND [Concomitant]
  5. INSULIN [Concomitant]

REACTIONS (4)
  - EYE SWELLING [None]
  - HYPERURICAEMIA [None]
  - VISUAL ACUITY REDUCED [None]
  - WEIGHT INCREASED [None]
